FAERS Safety Report 21177923 (Version 2)
Quarter: 2023Q2

REPORT INFORMATION
  Report Type: Spontaneous
  Country: IN (occurrence: IN)
  Receive Date: 20220805
  Receipt Date: 20230501
  Transmission Date: 20230721
  Serious: Yes (Other)
  Sender: FDA-Public Use
  Company Number: IN-PFIZER INC-PV202200033910

PATIENT
  Age: 66 Year
  Sex: Female

DRUGS (1)
  1. PALBOCICLIB [Suspect]
     Active Substance: PALBOCICLIB
     Dosage: 125 MG, 1X/DAY
     Route: 048

REACTIONS (1)
  - Breast operation [Unknown]

NARRATIVE: CASE EVENT DATE: 20220718
